FAERS Safety Report 8490928-8 (Version None)
Quarter: 2012Q2

REPORT INFORMATION
  Report Type: 
  Country: None (occurrence: None)
  Receive Date: 20120629
  Receipt Date: 20120629
  Transmission Date: 20120825
  Serious: Yes (Other)
  Sender: FDA-Public Use
  Company Number: None

PATIENT
  Age: 15 Year
  Sex: Female
  Weight: 48.1 kg

DRUGS (1)
  1. TEV-TROPIN [Suspect]
     Indication: DWARFISM
     Dosage: 2 MG 7 TIMES A WEEK SUBCUTANEOUS
     Route: 058
     Dates: start: 20120417, end: 20120626

REACTIONS (1)
  - ABDOMINAL PAIN UPPER [None]
